FAERS Safety Report 7854600-7 (Version None)
Quarter: 2011Q3

REPORT INFORMATION
  Report Type: 
  Country: None (occurrence: None)
  Receive Date: 20110916
  Receipt Date: 20110425
  Transmission Date: 20111222
  Serious: Yes (Hospitalization)
  Sender: FDA-Public Use
  Company Number: 2011SP018420

PATIENT
  Age: 18 Year
  Sex: Female
  Weight: 60.782 kg

DRUGS (1)
  1. IMPLANON [Suspect]
     Indication: CONTRACEPTION
     Dates: start: 20110331

REACTIONS (5)
  - ANXIETY [None]
  - PRURITUS [None]
  - NAUSEA [None]
  - HEADACHE [None]
  - APPLICATION SITE PAIN [None]
